FAERS Safety Report 23313761 (Version 1)
Quarter: 2023Q4

REPORT INFORMATION
  Report Type: Spontaneous
  Country: SK (occurrence: SK)
  Receive Date: 20231219
  Receipt Date: 20231219
  Transmission Date: 20240109
  Serious: Yes (Other)
  Sender: FDA-Public Use
  Company Number: None

PATIENT
  Age: 75 Year
  Sex: Female

DRUGS (2)
  1. CIPROFLOXACIN [Suspect]
     Active Substance: CIPROFLOXACIN
     Indication: Urinary tract disorder
     Dosage: UNKNOWN
     Route: 048
  2. CIPROFLOXACIN [Suspect]
     Active Substance: CIPROFLOXACIN
     Indication: Abdominal pain lower

REACTIONS (7)
  - Haematuria [Recovering/Resolving]
  - Crystal urine [Recovering/Resolving]
  - Pancreatitis [Recovering/Resolving]
  - Urinary tract inflammation [Recovering/Resolving]
  - Gastrointestinal pain [Recovering/Resolving]
  - Glycosuria [Recovering/Resolving]
  - Colitis [Recovering/Resolving]

NARRATIVE: CASE EVENT DATE: 20220112
